FAERS Safety Report 7089580-8 (Version None)
Quarter: 2010Q4

REPORT INFORMATION
  Report Type: 
  Country: None (occurrence: None)
  Receive Date: 20101029
  Receipt Date: 20101020
  Transmission Date: 20110411
  Serious: Yes (Death)
  Sender: FDA-Public Use
  Company Number: 2010BN00060

PATIENT

DRUGS (6)
  1. MELPHALAN HYDROCHLORIDE [Suspect]
     Indication: NON-HODGKIN'S LYMPHOMA
     Dosage: 140 MG/M2;X1
  2. CARMUSTINE [Suspect]
     Indication: NON-HODGKIN'S LYMPHOMA
     Dosage: 300 MG/M2;X1
  3. ETOPOSIDE [Suspect]
     Indication: NON-HODGKIN'S LYMPHOMA
     Dosage: 200 MG/M2;Q12H
  4. CYTARABINE [Suspect]
     Indication: NON-HODGKIN'S LYMPHOMA
     Dosage: 200 MG/M2;Q12H
  5. CON MEDS [Concomitant]
  6. PREV MEDS [Concomitant]

REACTIONS (1)
  - INTERSTITIAL LUNG DISEASE [None]
